FAERS Safety Report 7980455-6 (Version None)
Quarter: 2011Q4

REPORT INFORMATION
  Report Type: 
  Country: None (occurrence: None)
  Receive Date: 20111214
  Receipt Date: 20111208
  Transmission Date: 20120403
  Serious: Yes (Hospitalization)
  Sender: FDA-Public Use
  Company Number: US-GLAXOSMITHKLINE-A0946051A

PATIENT
  Age: 62 Year
  Sex: Female

DRUGS (8)
  1. LEVOTHYROXINE SODIUM [Concomitant]
     Indication: HYPOTHYROIDISM
     Route: 048
  2. ADVAIR DISKUS 100/50 [Suspect]
     Route: 065
     Dates: start: 20101224, end: 20110922
  3. CALCIUM CITRATE [Concomitant]
     Route: 048
  4. MECLIZINE [Concomitant]
     Route: 048
  5. ZANTAC [Concomitant]
     Route: 048
  6. INHALERS [Concomitant]
     Indication: ASTHMA
  7. LOSARTAN POTASSIUM [Concomitant]
     Route: 048
  8. ANTI-HYPERLIPIDAEMIC (UNSPECIFIED) [Concomitant]
     Indication: HYPERLIPIDAEMIA

REACTIONS (1)
  - HEART RATE INCREASED [None]
